FAERS Safety Report 22096525 (Version 1)
Quarter: 2023Q1

REPORT INFORMATION
  Report Type: Spontaneous
  Country: US (occurrence: US)
  Receive Date: 20230315
  Receipt Date: 20230315
  Transmission Date: 20230418
  Serious: No
  Sender: FDA-Public Use
  Company Number: US-GSKCCFUS-Case-01647921_AE-93015

PATIENT
  Sex: Male

DRUGS (1)
  1. TRELEGY ELLIPTA [Suspect]
     Active Substance: FLUTICASONE FUROATE\UMECLIDINIUM BROMIDE\VILANTEROL TRIFENATATE
     Indication: Chronic obstructive pulmonary disease
     Dosage: UNK UNK, QD 200/62.5/25
     Route: 055
     Dates: start: 20220509

REACTIONS (7)
  - Chest pain [Unknown]
  - Dyspepsia [Unknown]
  - Chills [Unknown]
  - Pyrexia [Unknown]
  - Wrong technique in device usage process [Unknown]
  - Product use issue [Unknown]
  - Inappropriate schedule of product administration [Unknown]
